FAERS Safety Report 10239726 (Version 2)
Quarter: 2014Q2

REPORT INFORMATION
  Report Type: Spontaneous
  Country: RU (occurrence: RU)
  Receive Date: 20140616
  Receipt Date: 20140630
  Transmission Date: 20141212
  Serious: No
  Sender: FDA-Public Use
  Company Number: RU-US-EMD SERONO, INC.-7298726

PATIENT
  Age: 47 Year
  Sex: Female
  Weight: 72 kg

DRUGS (3)
  1. GONAL-F [Suspect]
     Indication: PRODUCT USED FOR UNKNOWN INDICATION
     Route: 058
  2. CETROTIDE [Suspect]
     Indication: PRODUCT USED FOR UNKNOWN INDICATION
     Dosage: 0.25 (UNITS UNSPECIFIED)
     Route: 058
  3. OVITRELLE [Suspect]
     Indication: PRODUCT USED FOR UNKNOWN INDICATION
     Route: 058

REACTIONS (1)
  - Cytogenetic analysis abnormal [Recovered/Resolved]
